FAERS Safety Report 5460051-5 (Version None)
Quarter: 2007Q3

REPORT INFORMATION
  Report Type: 
  Country: None (occurrence: None)
  Receive Date: 20070919
  Receipt Date: 20070627
  Transmission Date: 20080115
  Serious: Yes (Other)
  Sender: FDA-Public Use
  Company Number: US-ASTRAZENECA-2007UW11288

PATIENT
  Age: 61 Year
  Sex: Female
  Weight: 60.3 kg

DRUGS (4)
  1. SEROQUEL [Suspect]
     Indication: INSOMNIA
     Route: 048
     Dates: start: 19980101
  2. VYTORIN [Concomitant]
  3. ASPIRIN [Concomitant]
  4. LUDIOMIL [Concomitant]
     Dates: start: 19800101, end: 19940101

REACTIONS (1)
  - CATARACT [None]
